FAERS Safety Report 18557771 (Version 1)
Quarter: 2020Q4

REPORT INFORMATION
  Report Type: Spontaneous
  Country: US (occurrence: US)
  Receive Date: 20201130
  Receipt Date: 20201130
  Transmission Date: 20210114
  Serious: No
  Sender: FDA-Public Use
  Company Number: US-BIOGEN-2020BI00950328

PATIENT
  Sex: Female

DRUGS (1)
  1. TECFIDERA [Suspect]
     Active Substance: DIMETHYL FUMARATE
     Indication: MULTIPLE SCLEROSIS
     Route: 048
     Dates: start: 20180516

REACTIONS (4)
  - Nausea [Recovered/Resolved]
  - Hair texture abnormal [Not Recovered/Not Resolved]
  - Alopecia [Unknown]
  - Abdominal discomfort [Recovered/Resolved]
